FAERS Safety Report 10103329 (Version 1)
Quarter: 2014Q2

REPORT INFORMATION
  Report Type: Spontaneous
  Country: US (occurrence: US)
  Receive Date: 20140424
  Receipt Date: 20140424
  Transmission Date: 20141212
  Serious: Yes (Other)
  Sender: FDA-Public Use
  Company Number: US-BRISTOL-MYERS SQUIBB COMPANY-20266318

PATIENT
  Sex: Male

DRUGS (1)
  1. ELIQUIS [Suspect]

REACTIONS (2)
  - Cerebrovascular accident [Unknown]
  - Atrial thrombosis [Unknown]
